FAERS Safety Report 8408162 (Version 3)
Quarter: 2014Q3

REPORT INFORMATION
  Report Type: Spontaneous
  Country: DE (occurrence: DE)
  Receive Date: 20120216
  Receipt Date: 20140729
  Transmission Date: 20150326
  Serious: Yes (Life-Threatening, Hospitalization, Other)
  Sender: FDA-Public Use
  Company Number: DE-RANBAXY-2012RR-52490

PATIENT
  Age: 78 Year
  Sex: Female
  Weight: 76 kg

DRUGS (2)
  1. CIPROBAY [Suspect]
     Active Substance: CIPROFLOXACIN
     Indication: SKIN ULCER
     Dosage: 500-1000 MG/DAY
     Route: 048
     Dates: start: 20110930, end: 20111004
  2. CEFUROXIME. [Suspect]
     Active Substance: CEFUROXIME
     Indication: SKIN ULCER
     Dosage: UNK
     Route: 065
     Dates: start: 20110930, end: 20110930

REACTIONS (1)
  - Renal failure acute [Recovered/Resolved]

NARRATIVE: CASE EVENT DATE: 20111002
